FAERS Safety Report 14273851 (Version 1)
Quarter: 2017Q4

REPORT INFORMATION
  Report Type: Spontaneous
  Country: DE (occurrence: DE)
  Receive Date: 20171211
  Receipt Date: 20171211
  Transmission Date: 20180321
  Serious: Yes (Hospitalization, Other)
  Sender: FDA-Public Use
  Company Number: DE-OTSUKA-2016_001893

PATIENT
  Age: 11 Year
  Sex: Female

DRUGS (4)
  1. ABILIFY [Suspect]
     Active Substance: ARIPIPRAZOLE
     Indication: DEPRESSED MOOD
     Dosage: 2.5 MG, UNK
     Route: 065
     Dates: start: 201508
  2. ABILIFY [Suspect]
     Active Substance: ARIPIPRAZOLE
     Dosage: 2.5 MG, UNK
     Route: 065
     Dates: start: 201510
  3. ABILIFY [Suspect]
     Active Substance: ARIPIPRAZOLE
     Indication: DEPRESSED MOOD
     Dosage: 3 ML, QD
     Route: 048
     Dates: end: 201601
  4. ABILIFY [Suspect]
     Active Substance: ARIPIPRAZOLE
     Dosage: 5 MG, UNK
     Route: 065
     Dates: start: 201508, end: 201510

REACTIONS (5)
  - Suicidal ideation [Unknown]
  - Off label use [Unknown]
  - Fatigue [Unknown]
  - Visual impairment [Unknown]
  - Visual field defect [Unknown]

NARRATIVE: CASE EVENT DATE: 201601
